FAERS Safety Report 10588360 (Version 2)
Quarter: 2014Q4

REPORT INFORMATION
  Report Type: Spontaneous
  Country: JP (occurrence: JP)
  Receive Date: 20141117
  Receipt Date: 20141117
  Transmission Date: 20150529
  Serious: Yes (Death, Other)
  Sender: FDA-Public Use
  Company Number: PHHY2013JP160426

PATIENT
  Age: 63 Year
  Sex: Male
  Weight: 62 kg

DRUGS (5)
  1. SUNITINIB [Suspect]
     Active Substance: SUNITINIB
     Indication: PRODUCT USED FOR UNKNOWN INDICATION
     Dosage: UNK
     Route: 065
  2. SUNITINIB [Suspect]
     Active Substance: SUNITINIB
     Dosage: SECOND CYCLE
     Route: 065
     Dates: start: 20120728
  3. GLIVEC [Suspect]
     Active Substance: IMATINIB MESYLATE
     Indication: GASTROINTESTINAL STROMAL TUMOUR
     Dosage: 400 MG, DAILY
     Route: 065
     Dates: start: 200707, end: 200905
  4. GLIVEC [Suspect]
     Active Substance: IMATINIB MESYLATE
     Dosage: UNK
     Route: 065
     Dates: start: 20110412, end: 201201
  5. GLIVEC [Suspect]
     Active Substance: IMATINIB MESYLATE
     Dosage: UNK
     Route: 065
     Dates: start: 20121204, end: 201302

REACTIONS (18)
  - Metastases to spine [Fatal]
  - Oedema [Recovering/Resolving]
  - Metastases to liver [Fatal]
  - Metastases to lung [Fatal]
  - Rash [Unknown]
  - Gastrointestinal stromal tumour [Fatal]
  - Neoplasm recurrence [Unknown]
  - Diplegia [Unknown]
  - Performance status decreased [Unknown]
  - Skin lesion [Unknown]
  - Wound complication [Unknown]
  - Diarrhoea [Recovering/Resolving]
  - Malignant neoplasm progression [Fatal]
  - Metastases to pleura [Fatal]
  - Nausea [Recovering/Resolving]
  - Drug resistance [Unknown]
  - Back pain [Recovering/Resolving]
  - Metastases to peritoneum [Fatal]

NARRATIVE: CASE EVENT DATE: 20090526
